FAERS Safety Report 22719665 (Version 2)
Quarter: 2024Q1

REPORT INFORMATION
  Report Type: Report from Study
  Country: US (occurrence: US)
  Receive Date: 20230718
  Receipt Date: 20240321
  Transmission Date: 20240410
  Serious: Yes (Hospitalization, Other)
  Sender: FDA-Public Use
  Company Number: US-009507513-2307USA007978

PATIENT
  Age: 74 Year
  Sex: Female

DRUGS (4)
  1. WELIREG [Suspect]
     Active Substance: BELZUTIFAN
     Indication: Renal cell carcinoma
     Dosage: 120 MILLIGRAM (3-40 MG TABLETS), ONE TIME PER DAY (QD)
     Route: 048
     Dates: start: 20230704, end: 20230710
  2. WELIREG [Suspect]
     Active Substance: BELZUTIFAN
     Dosage: 40 MG/ TWICE DAILY (BID)
     Route: 048
     Dates: end: 202403
  3. CEFDINIR [Concomitant]
     Active Substance: CEFDINIR
  4. DOXYCYCLINE [Concomitant]
     Active Substance: DOXYCYCLINE

REACTIONS (6)
  - Hypoxia [Recovering/Resolving]
  - Nausea [Unknown]
  - Product dose omission issue [Unknown]
  - Product use issue [Unknown]
  - Incorrect dose administered [Unknown]
  - Inappropriate schedule of product administration [Unknown]

NARRATIVE: CASE EVENT DATE: 20230709
